FAERS Safety Report 7705737-4 (Version None)
Quarter: 2011Q3

REPORT INFORMATION
  Report Type: 
  Country: None (occurrence: None)
  Receive Date: 20110824
  Receipt Date: 20110815
  Transmission Date: 20111222
  Serious: Yes (Hospitalization, Other)
  Sender: FDA-Public Use
  Company Number: US-BAYER-201039768NA

PATIENT
  Age: 40 Year
  Sex: Female
  Weight: 99.773 kg

DRUGS (9)
  1. ADVAIR DISKUS 100/50 [Concomitant]
     Dosage: 1 PUFF(S), BID
  2. PREDNISONE TAB [Concomitant]
  3. ACCUPRIL [Concomitant]
     Dosage: 20 MG, UNK
  4. YASMIN [Suspect]
     Indication: PRODUCT USED FOR UNKNOWN INDICATION
     Dosage: UNK
     Route: 048
     Dates: start: 20060920, end: 20061119
  5. MEDROL [Concomitant]
  6. HYDROCHLOROTHIAZIDE [Concomitant]
     Dosage: 25 MG, QD
  7. ZOLOFT [Concomitant]
     Dosage: 50 MG, QD
  8. SINGULAIR [Concomitant]
     Dosage: 10 MG, UNK
  9. ANTIBIOTICS [Concomitant]

REACTIONS (1)
  - PULMONARY EMBOLISM [None]
